FAERS Safety Report 6130930-4 (Version None)
Quarter: 2009Q1

REPORT INFORMATION
  Report Type: 
  Country: None (occurrence: None)
  Receive Date: 20090323
  Receipt Date: 20090311
  Transmission Date: 20090719
  Serious: No
  Sender: FDA-Public Use
  Company Number: 2009-193049-NL

PATIENT
  Age: 17 Year
  Sex: Female

DRUGS (2)
  1. MIRTAZAPINE [Suspect]
     Dosage: 7.5 MG
     Dates: end: 20080331
  2. CITALOPRAM HYDROBROMIDE [Suspect]
     Dosage: DF,ORAL
     Route: 048
     Dates: end: 20080331

REACTIONS (3)
  - ABORTION SPONTANEOUS [None]
  - DRUG EXPOSURE DURING PREGNANCY [None]
  - PREGNANCY [None]
